FAERS Safety Report 21592507 (Version 1)
Quarter: 2022Q4

REPORT INFORMATION
  Report Type: Spontaneous
  Country: US (occurrence: US)
  Receive Date: 20221114
  Receipt Date: 20221114
  Transmission Date: 20230113
  Serious: No
  Sender: FDA-Public Use
  Company Number: US-REGENERON PHARMACEUTICALS, INC.-2022-18705

PATIENT
  Sex: Female

DRUGS (1)
  1. CEMIPLIMAB [Suspect]
     Active Substance: CEMIPLIMAB
     Indication: Skin cancer
     Dosage: UNK
     Route: 042
     Dates: start: 202110

REACTIONS (5)
  - Skin disorder [Unknown]
  - Sleep disorder [Unknown]
  - Aphasia [Unknown]
  - Oral discomfort [Unknown]
  - Pruritus [Unknown]
